FAERS Safety Report 8876229 (Version 5)
Quarter: 2013Q1

REPORT INFORMATION
  Report Type: Report from Study
  Country: US (occurrence: US)
  Receive Date: 20121023
  Receipt Date: 20130225
  Transmission Date: 20140127
  Serious: Yes (Hospitalization)
  Sender: FDA-Public Use
  Company Number: US-JNJFOC-20121009457

PATIENT
  Age: 63 Year
  Sex: Female
  Weight: 81.1 kg

DRUGS (28)
  1. USTEKINUMAB [Suspect]
  2. USTEKINUMAB [Suspect]
     Indication: CROHN^S DISEASE
     Dates: start: 20121004
  3. FLEXERIL [Concomitant]
     Indication: MUSCLE SPASMS
     Route: 048
  4. LEVAQUIN [Concomitant]
     Route: 048
     Dates: start: 20120823
  5. LYRICA [Concomitant]
     Indication: PAIN
     Route: 048
  6. DILAUDID [Concomitant]
     Indication: CROHN^S DISEASE
     Route: 048
  7. MERCAPTOPURINE [Concomitant]
     Route: 048
     Dates: start: 20091124
  8. MELATONIN [Concomitant]
     Indication: SLEEP DISORDER
     Route: 048
  9. NASCOBAL [Concomitant]
     Indication: ANAEMIA
     Route: 045
  10. ZOFRAN [Concomitant]
     Indication: NAUSEA
     Route: 048
  11. TRAZODONE [Concomitant]
     Indication: DEPRESSION
     Route: 048
  12. CELEBREX [Concomitant]
     Indication: CROHN^S DISEASE
     Route: 048
  13. VALTREX [Concomitant]
     Route: 048
  14. BUDESONIDE [Concomitant]
     Indication: CROHN^S DISEASE
     Route: 048
     Dates: start: 20120621
  15. EFFEXOR [Concomitant]
     Indication: DEPRESSION
     Route: 048
  16. NORTRIPTYLINE [Concomitant]
     Indication: PAIN
     Route: 048
  17. BACTRIM DS [Concomitant]
     Indication: URINARY TRACT INFECTION
     Dosage: 800-160 MG
  18. BONIVA [Concomitant]
     Route: 048
  19. CALCIUM/VITAMIN D/VITAMIN K [Concomitant]
  20. DETROL LA [Concomitant]
     Route: 048
  21. ESTRACE CREAM [Concomitant]
     Route: 067
  22. FLUTICASONE [Concomitant]
     Route: 045
  23. BIMATOPROST [Concomitant]
  24. LOMOTIL [Concomitant]
     Dosage: 2.5-.025 MG
     Route: 048
  25. LOPERAMIDE [Concomitant]
     Route: 048
  26. MULTIVITAMINS [Concomitant]
     Route: 048
  27. NEXIUM [Concomitant]
     Route: 048
  28. XANAX [Concomitant]

REACTIONS (1)
  - Catheter site infection [Recovered/Resolved]
